FAERS Safety Report 9583798 (Version 1)
Quarter: 2013Q4

REPORT INFORMATION
  Report Type: Spontaneous
  Country: US (occurrence: US)
  Receive Date: 20131002
  Receipt Date: 20131002
  Transmission Date: 20140711
  Serious: No
  Sender: FDA-Public Use
  Company Number: US-AMGEN-USASP2013049435

PATIENT
  Age: 46 Year
  Sex: Male
  Weight: 90.7 kg

DRUGS (8)
  1. ENBREL [Suspect]
     Indication: PRODUCT USED FOR UNKNOWN INDICATION
     Dosage: 50 MG, 2 TIMES/WK
     Route: 058
  2. AMLODIPINE [Concomitant]
     Dosage: 10 MG, UNK
  3. LIPITOR [Concomitant]
     Dosage: 10 MG, UNK
  4. LISINOPRIL [Concomitant]
     Dosage: 10 MG, UNK
  5. ASPIRIN [Concomitant]
     Dosage: 81 MG, UNK
  6. METOPROLOL [Concomitant]
     Dosage: 25 MG, UNK
  7. FISH OIL [Concomitant]
     Dosage: UNK
  8. ATORVASTATIN [Concomitant]
     Dosage: 10 MG, UNK

REACTIONS (1)
  - Drug effect decreased [Unknown]
